FAERS Safety Report 6398138-5 (Version None)
Quarter: 2009Q3

REPORT INFORMATION
  Report Type: 
  Country: None (occurrence: None)
  Receive Date: 20090922
  Receipt Date: 20090910
  Transmission Date: 20100115
  Serious: Yes (Other)
  Sender: FDA-Public Use
  Company Number: THYM-1001155

PATIENT
  Age: 38 Year
  Sex: Female
  Weight: 61 kg

DRUGS (7)
  1. THYMOGLOBULIN [Suspect]
     Indication: APLASTIC ANAEMIA
     Dosage: 3.75 MG/KG, INTRAVENOUS;  2.5 MG/KG, INTRAVENOUS
     Route: 042
     Dates: start: 20090811, end: 20090811
  2. METHYLPREDNISOLONE [Concomitant]
  3. CYCLOSPORINE [Concomitant]
  4. LANSOPRAZOLE [Concomitant]
  5. ITRACONAZOLE [Concomitant]
  6. ACYCLOVIR [Concomitant]
  7. SULFAMETHOXAZOLE AND TRIMETHOPRIM [Concomitant]

REACTIONS (4)
  - ALANINE AMINOTRANSFERASE INCREASED [None]
  - ASPARTATE AMINOTRANSFERASE INCREASED [None]
  - DISSEMINATED INTRAVASCULAR COAGULATION [None]
  - PYREXIA [None]
